FAERS Safety Report 7844709-6 (Version None)
Quarter: 2011Q4

REPORT INFORMATION
  Report Type: 
  Country: None (occurrence: None)
  Receive Date: 20111025
  Receipt Date: 20111019
  Transmission Date: 20120403
  Serious: Yes (Hospitalization)
  Sender: FDA-Public Use
  Company Number: JP-EISAI INC-E2020-09611-SPO-JP

PATIENT
  Age: 96 Year
  Sex: Female

DRUGS (8)
  1. ACETAMINOPHEN [Concomitant]
     Route: 048
     Dates: start: 20110524
  2. ARICEPT [Interacting]
     Route: 048
     Dates: start: 20110519, end: 20110526
  3. HISTABLOCK [Concomitant]
     Route: 048
     Dates: start: 20110524
  4. ARICEPT [Suspect]
     Indication: DEMENTIA ALZHEIMER'S TYPE
     Route: 048
     Dates: start: 20100101, end: 20110518
  5. AMBROXOL HYDROCHLORIDE [Concomitant]
     Route: 048
     Dates: start: 20110524
  6. GASMOTIN [Concomitant]
     Route: 048
  7. CLARITHROMYCIN [Interacting]
     Route: 048
     Dates: start: 20110524
  8. MEVATORTE [Concomitant]
     Route: 048

REACTIONS (2)
  - DRUG INTERACTION [None]
  - ALTERED STATE OF CONSCIOUSNESS [None]
